FAERS Safety Report 5737403-9 (Version None)
Quarter: 2008Q2

REPORT INFORMATION
  Report Type: 
  Country: None (occurrence: None)
  Receive Date: 20080507
  Receipt Date: 20070706
  Transmission Date: 20081010
  Serious: Yes (Other)
  Sender: FDA-Public Use
  Company Number: 38769

PATIENT
  Sex: Male

DRUGS (11)
  1. DIPYRIDAMOL [Suspect]
     Indication: CARDIAC STRESS TEST
     Dates: start: 20070626
  2. PROGRAF [Concomitant]
  3. CELLCEPT [Concomitant]
  4. DIOVAN [Concomitant]
  5. CLONIDINE [Concomitant]
  6. NORVASC [Concomitant]
  7. LIPITOR [Concomitant]
  8. TOPROL-XL [Concomitant]
  9. WELLBUTRIN [Concomitant]
  10. ASPIRIN [Concomitant]
  11. PREVACID [Concomitant]

REACTIONS (1)
  - RASH [None]
